FAERS Safety Report 15792561 (Version 1)
Quarter: 2019Q1

REPORT INFORMATION
  Report Type: Other
  Country: ES (occurrence: ES)
  Receive Date: 20190107
  Receipt Date: 20190107
  Transmission Date: 20190417
  Serious: Yes (Death, Hospitalization)
  Sender: FDA-Public Use
  Company Number: ES-MSN LABORATORIES PRIVATE LIMITED-2060912

PATIENT
  Age: 77 Year
  Sex: Female

DRUGS (5)
  1. ENALAPRIL MALEATE. [Concomitant]
     Active Substance: ENALAPRIL MALEATE
     Route: 065
  2. METFORMIN HYDROCHLORIDE. [Concomitant]
     Active Substance: METFORMIN HYDROCHLORIDE
     Route: 065
  3. CAPECITABINE. [Suspect]
     Active Substance: CAPECITABINE
     Indication: COLORECTAL CANCER
     Route: 065
  4. OXALIPLATIN. [Suspect]
     Active Substance: OXALIPLATIN
     Route: 058
  5. SIMVASTATIN. [Concomitant]
     Active Substance: SIMVASTATIN
     Route: 065

REACTIONS (8)
  - Mucosal inflammation [Not Recovered/Not Resolved]
  - Acute kidney injury [Recovering/Resolving]
  - Atrial fibrillation [Unknown]
  - Pneumonia [Fatal]
  - Septic shock [Fatal]
  - Dihydropyrimidine dehydrogenase deficiency [Unknown]
  - Toxicity to various agents [Fatal]
  - Hyperkeratosis [Not Recovered/Not Resolved]
